FAERS Safety Report 4494261-0 (Version None)
Quarter: 2004Q4

REPORT INFORMATION
  Report Type: 
  Country: None (occurrence: None)
  Receive Date: 20041028
  Receipt Date: 20041026
  Transmission Date: 20050328
  Serious: Yes (Death, Life-Threatening)
  Sender: FDA-Public Use
  Company Number: 200408973

PATIENT
  Age: 76 Year
  Sex: Female

DRUGS (4)
  1. ALBUMINAR-5 [Suspect]
     Indication: CARDIAC OPERATION
     Dosage: 750 ML ONCE IV
     Route: 042
     Dates: start: 20040228, end: 20040228
  2. APROTININ [Suspect]
     Indication: CARDIAC OPERATION
     Dosage: IV
     Route: 042
     Dates: start: 20040228, end: 20040228
  3. LEVOPHED [Concomitant]
  4. DOBUTREX [Concomitant]

REACTIONS (10)
  - CARDIAC ARREST [None]
  - CIRCULATORY COLLAPSE [None]
  - GENERAL PHYSICAL HEALTH DETERIORATION [None]
  - HAEMODYNAMIC INSTABILITY [None]
  - HYPOVOLAEMIA [None]
  - PLATELET COUNT DECREASED [None]
  - POST PROCEDURAL COMPLICATION [None]
  - RENAL FAILURE [None]
  - SEPSIS [None]
  - VASCULAR GRAFT OCCLUSION [None]
